FAERS Safety Report 13855306 (Version 1)
Quarter: 2017Q3

REPORT INFORMATION
  Report Type: Spontaneous
  Country: US (occurrence: US)
  Receive Date: 20170810
  Receipt Date: 20170810
  Transmission Date: 20171127
  Serious: No
  Sender: FDA-Public Use
  Company Number: US-VIFOR (INTERNATIONAL) INC.-VIT-2017-04547

PATIENT
  Age: 70 Year
  Sex: Male

DRUGS (17)
  1. LIPITOR [Concomitant]
     Active Substance: ATORVASTATIN CALCIUM
  2. VELTASSA [Suspect]
     Active Substance: PATIROMER
     Indication: HYPERKALAEMIA
     Route: 048
     Dates: start: 20160617
  3. VELTASSA [Suspect]
     Active Substance: PATIROMER
     Indication: PRODUCT USED FOR UNKNOWN INDICATION
  4. IMURAN [Concomitant]
     Active Substance: AZATHIOPRINE
  5. ZANTAC [Concomitant]
     Active Substance: RANITIDINE HYDROCHLORIDE
  6. DIOVAN [Concomitant]
     Active Substance: VALSARTAN
  7. FOLTX [Concomitant]
     Active Substance: CYANOCOBALAMIN CO-57\FOLIC ACID\PYRIDOXINE HYDROCHLORIDE
  8. NITRO-DUR [Concomitant]
     Active Substance: NITROGLYCERIN
  9. STARLIX [Concomitant]
     Active Substance: NATEGLINIDE
  10. AMLODIPINE BESILATE [Concomitant]
     Active Substance: AMLODIPINE BESYLATE
  11. MYFORTIC [Concomitant]
     Active Substance: MYCOPHENOLATE SODIUM
  12. NEXIUM [Concomitant]
     Active Substance: ESOMEPRAZOLE MAGNESIUM
  13. TRADJENTA [Concomitant]
     Active Substance: LINAGLIPTIN
  14. BYSTOLIC [Concomitant]
     Active Substance: NEBIVOLOL HYDROCHLORIDE
  15. METANX [Concomitant]
     Active Substance: LEVOMEFOLATE CALCIUM\METHYLCOBALAMIN\PYRIDOXAL PHOSPHATE ANHYDROUS
  16. VASOTEC [Concomitant]
     Active Substance: ENALAPRIL MALEATE
  17. LOVAZA [Concomitant]
     Active Substance: OMEGA-3-ACID ETHYL ESTERS

REACTIONS (3)
  - Gluten sensitivity [Unknown]
  - Inappropriate schedule of drug administration [Unknown]
  - Rash [Unknown]

NARRATIVE: CASE EVENT DATE: 20170415
